FAERS Safety Report 4314169-0 (Version None)
Quarter: 2004Q1

REPORT INFORMATION
  Report Type: 
  Country: None (occurrence: None)
  Receive Date: 20040309
  Receipt Date: 20040226
  Transmission Date: 20041129
  Serious: Yes (Other)
  Sender: FDA-Public Use
  Company Number: US-BRISTOL-MYERS SQUIBB COMPANY-12517967

PATIENT
  Age: 36 Year
  Sex: Male

DRUGS (4)
  1. ATAZANAVIR [Suspect]
     Indication: HIV INFECTION
     Route: 048
  2. NORVIR [Suspect]
     Indication: HIV INFECTION
     Route: 048
  3. TENOFOVIR [Suspect]
     Indication: HIV INFECTION
     Route: 048
  4. LAMIVUDINE [Suspect]
     Indication: HIV INFECTION
     Route: 048

REACTIONS (5)
  - BLOOD BILIRUBIN INCREASED [None]
  - MENINGITIS CRYPTOCOCCAL [None]
  - NAUSEA [None]
  - VOMITING [None]
  - WEIGHT DECREASED [None]
